FAERS Safety Report 6021757-2 (Version None)
Quarter: 2008Q4

REPORT INFORMATION
  Report Type: 
  Country: None (occurrence: None)
  Receive Date: 20081223
  Receipt Date: 20081208
  Transmission Date: 20090506
  Serious: Yes (Hospitalization)
  Sender: FDA-Public Use
  Company Number: KV200801038

PATIENT
  Age: 80 Year
  Sex: Male

DRUGS (11)
  1. ISOSORBIDE MONONITRATE [Suspect]
     Indication: DRUG USE FOR UNKNOWN INDICATION
     Dosage: 30 MG, QD, ORAL
     Route: 048
  2. PREDNISONE [Concomitant]
  3. ZOCOR [Concomitant]
  4. PRILOSEC /00661201/ (OMEPRAZOLE) [Concomitant]
  5. IRON (IRON) [Concomitant]
  6. LANTUS [Concomitant]
  7. NITROGLYCERIN [Concomitant]
  8. PAXIL [Concomitant]
  9. ALLOPURINOL [Concomitant]
  10. COUMADIN [Concomitant]
  11. CORIG [Concomitant]

REACTIONS (5)
  - DIZZINESS [None]
  - FALL [None]
  - HIP FRACTURE [None]
  - HYPOTENSION [None]
  - PRODUCT QUALITY ISSUE [None]
